FAERS Safety Report 6540345-2 (Version None)
Quarter: 2010Q1

REPORT INFORMATION
  Report Type: 
  Country: None (occurrence: None)
  Receive Date: 20100115
  Receipt Date: 20100108
  Transmission Date: 20100710
  Serious: Yes (Death, Hospitalization)
  Sender: FDA-Public Use
  Company Number: SE-ASTRAZENECA-2010SE01007

PATIENT
  Age: 83 Year
  Sex: Female

DRUGS (10)
  1. ATACAND [Suspect]
     Route: 048
     Dates: start: 20091012, end: 20091112
  2. PANODIL EXTEND [Concomitant]
     Route: 048
  3. OPTINATE SEPTIMUM [Concomitant]
     Route: 048
  4. DRUG NOT SHOWN [Concomitant]
  5. DUROFERON [Concomitant]
     Route: 048
  6. DERMOVAT [Concomitant]
  7. FURIX [Concomitant]
     Route: 048
  8. CARESS [Concomitant]
  9. EMCONCOR CHF [Concomitant]
     Route: 048
  10. LEVOTHYROXINE SODIUM [Concomitant]
     Route: 048

REACTIONS (1)
  - RENAL FAILURE ACUTE [None]
